FAERS Safety Report 16780583 (Version 1)
Quarter: 2019Q4

REPORT INFORMATION
  Report Type: Spontaneous
  Country: US (occurrence: US)
  Receive Date: 20190906
  Receipt Date: 20190906
  Transmission Date: 20200122
  Serious: Yes (Hospitalization, Other)
  Sender: FDA-Public Use
  Company Number: None

PATIENT
  Age: 40 Year
  Sex: Male
  Weight: 74.25 kg

DRUGS (3)
  1. VITAMINS [Concomitant]
     Active Substance: VITAMINS
  2. PREDNISONE- 50MG- 5 DAY DOSE [Suspect]
     Active Substance: PREDNISONE
     Indication: UPPER RESPIRATORY TRACT INFECTION
     Dosage: ?          QUANTITY:5 TABLET(S);?
     Route: 048
     Dates: start: 20180123, end: 20180127
  3. NEW LEAF CBD OIL [Concomitant]

REACTIONS (10)
  - Asthenia [None]
  - Throat tightness [None]
  - Dyspnoea [None]
  - Pain [None]
  - Product prescribing issue [None]
  - Dysphagia [None]
  - Tremor [None]
  - Pain in extremity [None]
  - Hypertension [None]
  - Abdominal discomfort [None]

NARRATIVE: CASE EVENT DATE: 20180127
